FAERS Safety Report 11696066 (Version 2)
Quarter: 2015Q4

REPORT INFORMATION
  Report Type: Spontaneous
  Country: PL (occurrence: PL)
  Receive Date: 20151104
  Receipt Date: 20151209
  Transmission Date: 20160304
  Serious: Yes (Other)
  Sender: FDA-Public Use
  Company Number: PL-ROCHE-1655089

PATIENT
  Age: 55 Year
  Sex: Male

DRUGS (2)
  1. PEGASYS [Suspect]
     Active Substance: PEGINTERFERON ALFA-2A
     Indication: CHRONIC HEPATITIS C
     Route: 058
     Dates: start: 20080430, end: 20081017
  2. COPEGUS [Suspect]
     Active Substance: RIBAVIRIN
     Indication: CHRONIC HEPATITIS C
     Route: 065
     Dates: start: 20080430, end: 20081017

REACTIONS (8)
  - Urinary incontinence [Unknown]
  - Asthenia [Unknown]
  - Haemoglobin decreased [Recovered/Resolved]
  - Fatigue [Unknown]
  - Platelet count decreased [Recovered/Resolved]
  - Arthralgia [Unknown]
  - White blood cell count decreased [Recovered/Resolved]
  - Rectal adenocarcinoma [Unknown]
